FAERS Safety Report 10437963 (Version 2)
Quarter: 2014Q3

REPORT INFORMATION
  Report Type: Spontaneous
  Country: JP (occurrence: JP)
  Receive Date: 20140908
  Receipt Date: 20140908
  Transmission Date: 20150326
  Serious: Yes (Death)
  Sender: FDA-Public Use
  Company Number: JP-MALLINCKRODT-T201402561

PATIENT
  Age: 69 Year
  Sex: Male
  Weight: 69.6 kg

DRUGS (16)
  1. ZYLORIC [Concomitant]
     Active Substance: ALLOPURINOL
     Dosage: 100 MG
     Route: 048
     Dates: end: 20140618
  2. PURSENNID [Concomitant]
     Active Substance: SENNOSIDES A AND B CALCIUM
     Dosage: UNK MG, UNK
     Route: 048
     Dates: end: 20140618
  3. VOLTAREN [Concomitant]
     Active Substance: DICLOFENAC SODIUM
     Dosage: 25 MG, UNK
     Route: 054
     Dates: end: 20140618
  4. METHADONE [Suspect]
     Active Substance: METHADONE HYDROCHLORIDE
     Indication: CANCER PAIN
     Dosage: 5 MG,15 MG DAILY DOSE
     Route: 048
     Dates: start: 20140602, end: 20140609
  5. KEPPRA [Concomitant]
     Active Substance: LEVETIRACETAM
     Dosage: 1000 MG;
     Route: 048
     Dates: end: 20140618
  6. NAUZELIN [Concomitant]
     Active Substance: DOMPERIDONE
     Dosage: UNK MG, UNK
     Route: 054
     Dates: end: 20140618
  7. METHADONE [Suspect]
     Active Substance: METHADONE HYDROCHLORIDE
     Dosage: 10 MG; 20 MG DAILY DOSE
     Route: 048
     Dates: start: 20140610, end: 20140618
  8. MAGMITT [Concomitant]
     Active Substance: MAGNESIUM OXIDE
     Dosage: 990 MG
     Route: 048
     Dates: end: 20140618
  9. LAXOBERON [Concomitant]
     Active Substance: SODIUM PICOSULFATE
     Dosage: 10 DROPS (GTTS)
     Route: 048
     Dates: end: 20140618
  10. TRAVELMIN [Concomitant]
     Active Substance: DIMENHYDRINATE
     Dosage: 3 DF
     Route: 048
     Dates: end: 20140618
  11. LANSOPRAZOLE. [Concomitant]
     Active Substance: LANSOPRAZOLE
     Dosage: 15 MG, UNK
     Route: 048
     Dates: end: 20140618
  12. BAYASPIRIN [Concomitant]
     Active Substance: ASPIRIN
     Dosage: 200 MG
     Route: 048
     Dates: end: 20140618
  13. PRIMPERAN [Concomitant]
     Active Substance: METOCLOPRAMIDE HYDROCHLORIDE
     Dosage: 5 MG, UNK
     Route: 048
     Dates: end: 20140618
  14. OXINORM [Concomitant]
     Active Substance: OXYCODONE HYDROCHLORIDE
     Dosage: 10 MG PRN
     Route: 048
     Dates: start: 20140604, end: 20140616
  15. SARPOGRELATE HCL [Concomitant]
     Dosage: 300 MG
     Route: 048
     Dates: end: 20140618
  16. BROTIZOLAM [Concomitant]
     Active Substance: BROTIZOLAM
     Dosage: 0.25 MG
     Route: 048
     Dates: end: 20140618

REACTIONS (4)
  - Lung neoplasm malignant [Fatal]
  - Delirium [Not Recovered/Not Resolved]
  - Nausea [Not Recovered/Not Resolved]
  - Decreased appetite [Not Recovered/Not Resolved]

NARRATIVE: CASE EVENT DATE: 20140604
